FAERS Safety Report 4584547-3 (Version None)
Quarter: 2005Q1

REPORT INFORMATION
  Report Type: 
  Country: None (occurrence: None)
  Receive Date: 20050125
  Receipt Date: 20040923
  Transmission Date: 20050727
  Serious: No
  Sender: FDA-Public Use
  Company Number: USA040979053

PATIENT
  Age: 63 Year
  Sex: Female
  Weight: 37 kg

DRUGS (2)
  1. FORTEO [Suspect]
     Indication: OSTEOPOROSIS
     Dates: start: 20040901, end: 20040920
  2. MIACALCIN [Concomitant]

REACTIONS (6)
  - ARTHRALGIA [None]
  - BONE PAIN [None]
  - EAR PAIN [None]
  - HEADACHE [None]
  - NECK PAIN [None]
  - TOOTHACHE [None]
